FAERS Safety Report 24419600 (Version 1)
Quarter: 2024Q4

REPORT INFORMATION
  Report Type: Spontaneous
  Country: FI (occurrence: FI)
  Receive Date: 20241010
  Receipt Date: 20241010
  Transmission Date: 20250115
  Serious: Yes (Hospitalization)
  Sender: ABBVIE
  Company Number: FI-ABBVIE-5899529

PATIENT
  Sex: Male

DRUGS (8)
  1. RINVOQ [Suspect]
     Active Substance: UPADACITINIB
     Indication: Colitis ulcerative
     Dosage: FORM STRENGTH: 15 MILLIGRAM
     Route: 048
     Dates: start: 20240915
  2. RINVOQ [Suspect]
     Active Substance: UPADACITINIB
     Indication: Colitis ulcerative
     Dosage: FORM STRENGTH: 45 MILLIGRAM
     Route: 048
     Dates: start: 20231016, end: 20231208
  3. RINVOQ [Suspect]
     Active Substance: UPADACITINIB
     Indication: Colitis ulcerative
     Dosage: FORM STRENGTH: 15 MILLIGRAM
     Route: 048
     Dates: start: 20231228, end: 20240823
  4. RINVOQ [Suspect]
     Active Substance: UPADACITINIB
     Indication: Colitis ulcerative
     Dosage: FORM STRENGTH: 30 MILLIGRAM
     Route: 048
     Dates: start: 20231208, end: 20231228
  5. ROSUVASTATIN [Concomitant]
     Active Substance: ROSUVASTATIN
     Indication: Product used for unknown indication
     Dosage: FORM STRENGTH: 10 MILLIGRAM
  6. MICARDIS [Concomitant]
     Active Substance: TELMISARTAN
     Indication: Product used for unknown indication
     Dosage: FORM STRENGTH: 80 MILLIGRAM
  7. AMLODIPINE BESYLATE [Concomitant]
     Active Substance: AMLODIPINE BESYLATE
     Indication: Product used for unknown indication
     Dosage: FORM STRENGTH: 5 MILLIGRAM
  8. FEXOFENADINE [Concomitant]
     Active Substance: FEXOFENADINE HYDROCHLORIDE
     Indication: Product used for unknown indication
     Dosage: FORM STRENGTH: 120 MILLIGRAM

REACTIONS (9)
  - Acne fulminans [Recovering/Resolving]
  - Pyrexia [Recovered/Resolved]
  - Folliculitis [Recovering/Resolving]
  - Acne [Unknown]
  - Feeling hot [Recovering/Resolving]
  - Swelling face [Recovering/Resolving]
  - Pustule [Recovering/Resolving]
  - Erythema [Recovering/Resolving]
  - Facial pain [Recovering/Resolving]

NARRATIVE: CASE EVENT DATE: 20230101
